FAERS Safety Report 13936801 (Version 1)
Quarter: 2017Q3

REPORT INFORMATION
  Report Type: Spontaneous
  Country: FR (occurrence: FR)
  Receive Date: 20170905
  Receipt Date: 20170905
  Transmission Date: 20171127
  Serious: Yes (Other)
  Sender: FDA-Public Use
  Company Number: PHHY2017FR128486

PATIENT
  Sex: Male

DRUGS (5)
  1. TRILEPTAL [Suspect]
     Active Substance: OXCARBAZEPINE
     Dosage: 150 MG, QD (IN THE MORNING)
     Route: 065
  2. TRILEPTAL [Suspect]
     Active Substance: OXCARBAZEPINE
     Dosage: 600 MG, QD (IN THE EVENING)
     Route: 065
     Dates: start: 2000
  3. COSENTYX [Suspect]
     Active Substance: SECUKINUMAB
     Dosage: 1050 MG, QD (900 MG PLUS 150 MG)
     Route: 065
  4. TRILEPTAL [Suspect]
     Active Substance: OXCARBAZEPINE
     Indication: EPILEPSY
     Dosage: 300 MG, QD (IN THE MORNING)
     Route: 065
     Dates: start: 2000
  5. COSENTYX [Suspect]
     Active Substance: SECUKINUMAB
     Indication: EPILEPSY
     Dosage: 900 MG, QD
     Route: 065

REACTIONS (6)
  - Weight increased [Unknown]
  - Proctalgia [Unknown]
  - Swelling [Unknown]
  - Constipation [Unknown]
  - Product use in unapproved indication [Unknown]
  - Epilepsy [Unknown]

NARRATIVE: CASE EVENT DATE: 201708
